FAERS Safety Report 19238441 (Version 1)
Quarter: 2021Q2

REPORT INFORMATION
  Report Type: Spontaneous
  Country: US (occurrence: US)
  Receive Date: 20210510
  Receipt Date: 20210510
  Transmission Date: 20210717
  Serious: No
  Sender: FDA-Public Use
  Company Number: US-PFIZER INC-2021480287

PATIENT
  Age: 63 Year
  Sex: Female

DRUGS (1)
  1. IBRANCE [Suspect]
     Active Substance: PALBOCICLIB
     Indication: BREAST NEOPLASM
     Dosage: 100 MG TAKE 1 TAB FOR 21 DAYS, EVERY 28 DAYS, THEN REPEAT CYCLE
     Dates: start: 20180209

REACTIONS (2)
  - Confusional state [Unknown]
  - Fatigue [Unknown]
